FAERS Safety Report 10239911 (Version 1)
Quarter: 2014Q2

REPORT INFORMATION
  Report Type: Spontaneous
  Country: US (occurrence: US)
  Receive Date: 20140616
  Receipt Date: 20140616
  Transmission Date: 20141212
  Serious: Yes (Hospitalization)
  Sender: FDA-Public Use
  Company Number: US-GILEAD-2014-0105552

PATIENT
  Sex: Male

DRUGS (13)
  1. LETAIRIS [Suspect]
     Indication: PULMONARY ARTERIAL HYPERTENSION
     Dosage: 10 MG, QD
     Route: 065
     Dates: start: 20140318, end: 20140522
  2. GLIPIZIDE [Concomitant]
  3. METOLAZONE [Concomitant]
  4. GABAPENTIN [Concomitant]
  5. WARFARIN [Concomitant]
  6. SPIRONOLACTONE [Concomitant]
  7. SIMVASTATIN [Concomitant]
  8. FUROSEMIDE [Concomitant]
  9. CARVEDILOL [Concomitant]
  10. ALBUTEROL                          /00139501/ [Concomitant]
  11. PERCOCET                           /00867901/ [Concomitant]
  12. ADCIRCA [Concomitant]
  13. ZEBETA [Concomitant]

REACTIONS (3)
  - Renal disorder [Not Recovered/Not Resolved]
  - Oedema [Recovered/Resolved]
  - Fluid retention [Recovering/Resolving]
